FAERS Safety Report 6285643-5 (Version None)
Quarter: 2009Q3

REPORT INFORMATION
  Report Type: 
  Country: None (occurrence: None)
  Receive Date: 20090724
  Receipt Date: 20090713
  Transmission Date: 20100115
  Serious: Yes (Other)
  Sender: FDA-Public Use
  Company Number: 09-001130

PATIENT
  Age: 38 Year
  Sex: Female
  Weight: 63.5 kg

DRUGS (1)
  1. LOESTRIN 24 FE (NORETHINDRONE ACETATE, ETHINYL ESTRADIOL, FERROUS FUMA [Suspect]
     Indication: UTERINE LEIOMYOMA
     Dosage: 20/1000 UG, QD, ORAL
     Route: 048
     Dates: start: 20080101

REACTIONS (3)
  - CONDITION AGGRAVATED [None]
  - NO THERAPEUTIC RESPONSE [None]
  - PELVIC PAIN [None]
